FAERS Safety Report 11336286 (Version 3)
Quarter: 2016Q4

REPORT INFORMATION
  Report Type: Report from Study
  Country: CO (occurrence: CO)
  Receive Date: 20150804
  Receipt Date: 20161011
  Transmission Date: 20170206
  Serious: Yes (Hospitalization)
  Sender: FDA-Public Use
  Company Number: CO-INCYTE CORPORATION-2015IN003242

PATIENT
  Age: 31 Year
  Sex: Female
  Weight: 46.5 kg

DRUGS (18)
  1. JAKAVI [Suspect]
     Active Substance: RUXOLITINIB
     Indication: PRIMARY MYELOFIBROSIS
     Dosage: 20 MG, Q12H
     Route: 048
     Dates: start: 2007
  2. MIRCERA [Concomitant]
     Active Substance: METHOXY POLYETHYLENE GLYCOL-EPOETIN BETA
     Indication: PRODUCT USED FOR UNKNOWN INDICATION
     Dosage: 150 MG, UNK
     Route: 065
  3. MIRCERA [Concomitant]
     Active Substance: METHOXY POLYETHYLENE GLYCOL-EPOETIN BETA
     Dosage: QW
  4. PARICALCITOL. [Concomitant]
     Active Substance: PARICALCITOL
     Route: 065
  5. CALCIUM [Concomitant]
     Active Substance: CALCIUM
     Dosage: UNK
     Route: 065
  6. CLONIDINE. [Concomitant]
     Active Substance: CLONIDINE
     Indication: BLOOD PRESSURE INCREASED
     Dosage: 150 MG, UNK
     Route: 048
  7. PARICALCITOL. [Concomitant]
     Active Substance: PARICALCITOL
     Indication: PRODUCT USED FOR UNKNOWN INDICATION
     Dosage: 3 MG, UNK
     Route: 065
  8. LEVOTHYROXINE. [Concomitant]
     Active Substance: LEVOTHYROXINE
     Indication: PRODUCT USED FOR UNKNOWN INDICATION
     Dosage: 50 MG, UNK
     Route: 065
  9. CALCIUM [Concomitant]
     Active Substance: CALCIUM
     Dosage: UNK
     Route: 065
  10. MIRCERA [Concomitant]
     Active Substance: METHOXY POLYETHYLENE GLYCOL-EPOETIN BETA
     Dosage: QW
  11. PARICALCITOL. [Concomitant]
     Active Substance: PARICALCITOL
     Route: 065
  12. PRAZOSIN [Concomitant]
     Active Substance: PRAZOSIN
     Indication: BLOOD PRESSURE INCREASED
     Dosage: 1 MG, QD
     Route: 048
  13. CALCIUM [Concomitant]
     Active Substance: CALCIUM
     Indication: PRODUCT USED FOR UNKNOWN INDICATION
     Dosage: 600 MG, UNK
     Route: 065
  14. AMLODIPINE [Concomitant]
     Active Substance: AMLODIPINE BESYLATE
     Indication: BLOOD PRESSURE INCREASED
     Dosage: 10 MG, BID
     Route: 048
  15. JAKAVI [Suspect]
     Active Substance: RUXOLITINIB
     Dosage: 5 MG, Q12H
     Route: 048
  16. LEVOTHYROXINE. [Concomitant]
     Active Substance: LEVOTHYROXINE
     Route: 065
  17. PARICALCITOL. [Concomitant]
     Active Substance: PARICALCITOL
     Route: 065
  18. CALCIUM [Concomitant]
     Active Substance: CALCIUM
     Dosage: 600 MG, TID
     Route: 048

REACTIONS (4)
  - Peritonitis [Unknown]
  - Arthralgia [Unknown]
  - Peritoneal dialysis complication [Unknown]
  - Haemoglobin decreased [Unknown]
